FAERS Safety Report 5021731-9 (Version None)
Quarter: 2006Q2

REPORT INFORMATION
  Report Type: 
  Country: None (occurrence: None)
  Receive Date: 20060605
  Receipt Date: 20060525
  Transmission Date: 20061013
  Serious: Yes (Other)
  Sender: FDA-Public Use
  Company Number: 2006068646

PATIENT
  Age: 3 Year
  Sex: Female
  Weight: 18.1439 kg

DRUGS (2)
  1. BENADRYL [Suspect]
     Indication: NASOPHARYNGITIS
     Dosage: 1 1/2 TEASPOON TWICE, ORAL
     Route: 048
     Dates: start: 20051224
  2. ACETAMINOPHEN [Suspect]
     Indication: PYREXIA
     Dosage: 1 1/2 TEASPOON PRN, ORAL
     Route: 048
     Dates: start: 20051224

REACTIONS (6)
  - CONVULSION [None]
  - COUGH [None]
  - FATIGUE [None]
  - PARTIAL SEIZURES [None]
  - RHINORRHOEA [None]
  - VOMITING [None]
